FAERS Safety Report 8453911 (Version 7)
Quarter: 2013Q1

REPORT INFORMATION
  Report Type: Spontaneous
  Country: US (occurrence: US)
  Receive Date: 20120312
  Receipt Date: 20130111
  Transmission Date: 20140127
  Serious: Yes (Hospitalization, Disabling, Other)
  Sender: FDA-Public Use
  Company Number: US-009507513-1203USA01080

PATIENT
  Sex: 0

DRUGS (22)
  1. FOSAMAX [Suspect]
     Indication: BONE DENSITY DECREASED
     Dosage: 70 MG, QW
     Route: 048
     Dates: start: 20040823, end: 20051207
  2. FOSAMAX [Suspect]
     Indication: OSTEOPENIA
  3. BONIVA [Suspect]
     Indication: OSTEOPENIA
     Dosage: 150 MG, UNK
     Dates: start: 20060120, end: 20070717
  4. BONIVA [Suspect]
     Indication: OSTEOPOROSIS
     Dosage: 150 MG/KG, UNK
     Dates: start: 20081202, end: 20110902
  5. BONIVA [Suspect]
     Indication: OSTEOPENIA
     Dosage: 3 MG/ML
     Dates: start: 20070813, end: 20080225
  6. BONIVA [Suspect]
     Indication: OSTEOPOROSIS
     Dosage: 3 UNK, UNK
     Dates: start: 20080523
  7. BONIVA [Suspect]
     Dosage: 3 UNK, UNK
     Dates: start: 20090527
  8. BONIVA [Suspect]
     Dosage: 3 UNK, UNK
     Dates: start: 20080924
  9. BONIVA [Suspect]
     Dosage: 3 MG/3ML
     Dates: start: 20080325
  10. AMBIEN [Concomitant]
     Indication: INSOMNIA
     Dosage: UNK
     Dates: start: 200005, end: 200705
  11. ACIPHEX [Concomitant]
     Indication: GASTRIC DISORDER
     Dosage: UNK
     Dates: start: 200305, end: 200701
  12. DICYCLOMINE HYDROCHLORIDE [Concomitant]
     Indication: GASTRIC DISORDER
     Dosage: UNK
     Dates: start: 200308
  13. FLUVOXAMINE MALEATE [Concomitant]
     Indication: MENTAL DISORDER
     Dosage: UNK
     Dates: start: 200005, end: 200903
  14. HYDROCODONE [Concomitant]
     Indication: PAIN
     Dosage: UNK
     Dates: start: 200105, end: 200902
  15. KADIAN [Concomitant]
     Indication: PAIN
     Dosage: UNK
     Dates: start: 200406, end: 200808
  16. LAMICTAL [Concomitant]
     Indication: MENTAL DISORDER
     Dosage: UNK
     Dates: start: 200404, end: 200803
  17. OXYCODONE [Concomitant]
     Indication: PAIN
     Dosage: UNK
     Dates: start: 200107, end: 200706
  18. VIOXX [Concomitant]
     Dosage: UNK
     Route: 048
     Dates: start: 20030226
  19. HUMIRA [Concomitant]
     Indication: ARTHRITIS
     Dosage: UNK
     Dates: start: 200403, end: 200504
  20. HYDROXYCHLOROQUINE SULFATE [Concomitant]
     Indication: SYSTEMIC LUPUS ERYTHEMATOSUS
     Dosage: UNK
     Dates: start: 200309, end: 200503
  21. DARVOCET-N [Concomitant]
     Indication: PAIN
  22. HORMONES (UNSPECIFIED) [Concomitant]

REACTIONS (90)
  - Femur fracture [Not Recovered/Not Resolved]
  - Intramedullary rod insertion [Unknown]
  - Osteonecrosis [Recovered/Resolved]
  - Low turnover osteopathy [Not Recovered/Not Resolved]
  - Debridement [Unknown]
  - Presyncope [Unknown]
  - Rotator cuff repair [Unknown]
  - Wound dehiscence [Unknown]
  - Drug withdrawal syndrome [Unknown]
  - Hyperparathyroidism [Unknown]
  - Suicide attempt [Unknown]
  - Suicidal ideation [Unknown]
  - Intervertebral disc operation [Unknown]
  - Arthroscopy [Unknown]
  - Meniscus injury [Unknown]
  - Dehydration [Unknown]
  - Vomiting [Unknown]
  - Nausea [Unknown]
  - Arthralgia [Not Recovered/Not Resolved]
  - Spinal compression fracture [Unknown]
  - Calcium deficiency [Unknown]
  - Vitamin D deficiency [Unknown]
  - Head injury [Unknown]
  - Facial bones fracture [Unknown]
  - Bone disorder [Unknown]
  - Pain [Not Recovered/Not Resolved]
  - Hepatic steatosis [Unknown]
  - Hypertension [Not Recovered/Not Resolved]
  - Hypothyroidism [Unknown]
  - Loss of consciousness [Unknown]
  - Depression [Not Recovered/Not Resolved]
  - Anxiety [Not Recovered/Not Resolved]
  - Spinal osteoarthritis [Unknown]
  - Heart rate irregular [Unknown]
  - Fatigue [Unknown]
  - Memory impairment [Unknown]
  - Epistaxis [Unknown]
  - Dyspnoea [Unknown]
  - Osteomalacia [Unknown]
  - Sinus disorder [Unknown]
  - Condition aggravated [Not Recovered/Not Resolved]
  - Drug dependence [Unknown]
  - Muscle strain [Not Recovered/Not Resolved]
  - Intervertebral disc protrusion [Unknown]
  - Syncope [Unknown]
  - Hypotension [Unknown]
  - Sciatica [Unknown]
  - Ligament sprain [Unknown]
  - Skin infection [Unknown]
  - Urinary tract infection [Unknown]
  - Fungal infection [Unknown]
  - Spinal osteoarthritis [Unknown]
  - Oesophageal dilatation [Unknown]
  - Drug intolerance [Unknown]
  - Diverticulum [Unknown]
  - Anaemia postoperative [Unknown]
  - Cardiac disorder [Unknown]
  - Wound infection [Unknown]
  - Blood alkaline phosphatase increased [Unknown]
  - Cyst [Unknown]
  - Rubber sensitivity [Unknown]
  - Osteoarthritis [Unknown]
  - Bursitis [Unknown]
  - Lumbar radiculopathy [Unknown]
  - Eating disorder [Unknown]
  - Somnambulism [Unknown]
  - Body temperature decreased [Unknown]
  - Hyperreflexia [Unknown]
  - Insomnia [Unknown]
  - Haemorrhoids [Unknown]
  - Abnormal loss of weight [Unknown]
  - Cardiac murmur [Unknown]
  - Hypertension [Unknown]
  - Staphylococcal infection [Unknown]
  - Alcohol abuse [Unknown]
  - Fall [Unknown]
  - Upper respiratory tract infection [Unknown]
  - Local swelling [Unknown]
  - Dyspepsia [Unknown]
  - Neck pain [Unknown]
  - Diarrhoea [Unknown]
  - Drug ineffective [Unknown]
  - Musculoskeletal pain [Unknown]
  - Abdominal pain [Unknown]
  - Rash pruritic [Unknown]
  - Vertigo [Not Recovered/Not Resolved]
  - Constipation [Unknown]
  - Back pain [Not Recovered/Not Resolved]
  - Pain in extremity [Unknown]
  - Drug hypersensitivity [Unknown]
